FAERS Safety Report 14280846 (Version 1)
Quarter: 2017Q4

REPORT INFORMATION
  Report Type: Spontaneous
  Country: US (occurrence: US)
  Receive Date: 20171213
  Receipt Date: 20171213
  Transmission Date: 20180321
  Serious: Yes (Hospitalization)
  Sender: FDA-Public Use
  Company Number: US-WEST-WARD PHARMACEUTICALS CORP.-US-H14001-17-04822

PATIENT
  Age: 21 Year
  Sex: Male

DRUGS (1)
  1. DIPHENHYDRAMINE. [Suspect]
     Active Substance: DIPHENHYDRAMINE
     Indication: PRODUCT USED FOR UNKNOWN INDICATION
     Route: 065

REACTIONS (18)
  - Dysarthria [Unknown]
  - Sinus tachycardia [Recovered/Resolved]
  - Salivary hypersecretion [Unknown]
  - Discomfort [Unknown]
  - Muscle rigidity [Recovered/Resolved]
  - Hyperreflexia [Unknown]
  - Dysphonia [Unknown]
  - Eye movement disorder [Recovered/Resolved]
  - Withdrawal syndrome [Unknown]
  - Cold sweat [Unknown]
  - Hyporesponsive to stimuli [Unknown]
  - Reduced facial expression [Unknown]
  - Postural tremor [Recovered/Resolved]
  - Mental status changes [Unknown]
  - Mydriasis [Unknown]
  - Flushing [Unknown]
  - Staring [Unknown]
  - Hyperhidrosis [Unknown]
